FAERS Safety Report 23895259 (Version 1)
Quarter: 2024Q2

REPORT INFORMATION
  Report Type: Spontaneous
  Country: US (occurrence: None)
  Receive Date: 20240523
  Receipt Date: 20240523
  Transmission Date: 20240716
  Serious: Yes (Death)
  Sender: FDA-Public Use
  Company Number: None

PATIENT
  Age: 67 Year
  Sex: Female

DRUGS (1)
  1. BOTOX [Suspect]
     Active Substance: ONABOTULINUMTOXINA
     Indication: Dystonia
     Dosage: OTHER STRENGTH : 100 UNIT ;?OTHER QUANTITY : 300 UNITS;?OTHER FREQUENCY : Q 84 D ;?

REACTIONS (1)
  - Death [None]

NARRATIVE: CASE EVENT DATE: 20240516
